FAERS Safety Report 5395953-1 (Version None)
Quarter: 2007Q3

REPORT INFORMATION
  Report Type: 
  Country: None (occurrence: None)
  Receive Date: 20070718
  Receipt Date: 20070312
  Transmission Date: 20080115
  Serious: Yes (Other)
  Sender: FDA-Public Use
  Company Number: 2006126133

PATIENT
  Sex: Female

DRUGS (3)
  1. CELEBREX [Suspect]
     Dosage: 100 MG (100 MG, 1 IN 1 D)
     Dates: start: 19970101, end: 20020301
  2. BEXTRA [Suspect]
  3. VIOXX [Suspect]
     Dates: start: 20020207

REACTIONS (1)
  - MYOCARDIAL INFARCTION [None]
